FAERS Safety Report 4886099-7 (Version None)
Quarter: 2006Q1

REPORT INFORMATION
  Report Type: 
  Country: None (occurrence: None)
  Receive Date: 20060118
  Receipt Date: 20060118
  Transmission Date: 20060701
  Serious: Yes (Hospitalization)
  Sender: FDA-Public Use
  Company Number: None

PATIENT
  Age: 80 Year
  Sex: Female
  Weight: 51.3 kg

DRUGS (15)
  1. ASPIRIN [Suspect]
     Dosage: 81 QD
  2. IBUPROFEN [Suspect]
     Dosage: 600 MG BID
  3. CYLERT [Concomitant]
  4. TOPROL [Concomitant]
  5. NORVASC [Concomitant]
  6. K-DUR 10 [Concomitant]
  7. FUROSEMIDE [Concomitant]
  8. NITRO [Concomitant]
  9. RANITIDINE [Concomitant]
  10. MICALCIN [Concomitant]
  11. RESTASIS [Concomitant]
  12. MULTI-VITAMIN [Concomitant]
  13. CALCIUM GLUCONATE [Concomitant]
  14. ACETAMINOPHEN [Concomitant]
  15. CELLUVISC [Concomitant]

REACTIONS (5)
  - ABDOMINAL PAIN UPPER [None]
  - DUODENAL ULCER HAEMORRHAGE [None]
  - FAECES DISCOLOURED [None]
  - HYPOTENSION [None]
  - INAPPROPRIATE SCHEDULE OF DRUG ADMINISTRATION [None]
